FAERS Safety Report 7295245-X (Version None)
Quarter: 2011Q1

REPORT INFORMATION
  Report Type: 
  Country: None (occurrence: None)
  Receive Date: 20110216
  Receipt Date: 20110201
  Transmission Date: 20110831
  Serious: Yes (Other)
  Sender: FDA-Public Use
  Company Number: GB-TEVA-266069ISR

PATIENT
  Age: 29 Year
  Sex: Female
  Weight: 73 kg

DRUGS (1)
  1. FEXOFENADINE [Suspect]
     Route: 048
     Dates: start: 20110110, end: 20110111

REACTIONS (1)
  - HYPERTENSION [None]
